FAERS Safety Report 24334121 (Version 2)
Quarter: 2024Q3

REPORT INFORMATION
  Report Type: Spontaneous
  Country: US (occurrence: US)
  Receive Date: 20240918
  Receipt Date: 20240927
  Transmission Date: 20241016
  Serious: No
  Sender: BAYER
  Company Number: US-BAYER-2024A131775

PATIENT
  Age: 40 Year
  Sex: Female

DRUGS (2)
  1. MIRENA [Suspect]
     Active Substance: LEVONORGESTREL
     Dosage: 20?G/DAY
     Route: 015
     Dates: start: 20240913, end: 20240913
  2. SILVER NITRATE [Concomitant]
     Active Substance: SILVER NITRATE

REACTIONS (3)
  - Complication of device insertion [Recovered/Resolved]
  - Haemostasis [Recovered/Resolved]
  - Uterine cervix stenosis [None]

NARRATIVE: CASE EVENT DATE: 20240913
